FAERS Safety Report 4864530-0 (Version None)
Quarter: 2005Q4

REPORT INFORMATION
  Report Type: 
  Country: None (occurrence: None)
  Receive Date: 20051222
  Receipt Date: 20000504
  Transmission Date: 20060501
  Serious: Yes (Hospitalization)
  Sender: FDA-Public Use
  Company Number: US-ROCHE-235860

PATIENT
  Age: 52 Year
  Sex: Female
  Weight: 68.5 kg

DRUGS (17)
  1. MYCOPHENOLATE MOFETIL [Suspect]
     Route: 065
  2. PLACEBO [Suspect]
     Route: 042
     Dates: start: 20000419
  3. CYCLOSPORINE [Suspect]
     Route: 065
     Dates: start: 20000421
  4. METHYLPREDNISOLONE SODIUM SUCCINATE [Suspect]
     Route: 065
     Dates: start: 20000419
  5. PERIDEX [Concomitant]
     Dates: start: 20000419
  6. ZANTAC [Concomitant]
     Dates: start: 20000419, end: 20000424
  7. CEFUROXIME [Concomitant]
     Dates: start: 20000419
  8. INSULIN DRIP [Concomitant]
     Route: 041
     Dates: start: 20000419
  9. VERSED [Concomitant]
     Route: 041
     Dates: start: 20000419, end: 20000424
  10. ISUPREL [Concomitant]
     Route: 041
     Dates: start: 20000419, end: 20000422
  11. DOBUTAMINE [Concomitant]
     Route: 041
     Dates: start: 20000419, end: 20000425
  12. GANCICLOVIR [Concomitant]
     Dates: start: 20000419
  13. NYSTATIN [Concomitant]
     Dates: start: 20000419
  14. PRIMACOR [Concomitant]
     Route: 041
     Dates: start: 20000421
  15. LASIX [Concomitant]
     Dates: start: 20000421, end: 20000425
  16. MORPHINE SULFATE [Concomitant]
     Dates: start: 20000422, end: 20000424
  17. NITRIC OXIDE [Concomitant]
     Dates: start: 20000419, end: 20000426

REACTIONS (2)
  - ACUTE RESPIRATORY DISTRESS SYNDROME [None]
  - LUNG INFILTRATION [None]
